FAERS Safety Report 9596506 (Version 1)
Quarter: 2013Q4

REPORT INFORMATION
  Report Type: Spontaneous
  Country: FR (occurrence: FR)
  Receive Date: 20131004
  Receipt Date: 20131004
  Transmission Date: 20140711
  Serious: Yes (Other)
  Sender: FDA-Public Use
  Company Number: FR-TEVA-435021ISR

PATIENT
  Age: 63 Year
  Sex: Female

DRUGS (2)
  1. AZILECT [Suspect]
     Indication: MOTOR DYSFUNCTION
     Dates: start: 2013, end: 2013
  2. TRIVASTAL [Concomitant]
     Dosage: FOR 4 YEARS

REACTIONS (2)
  - Progressive supranuclear palsy [Unknown]
  - Bedridden [Unknown]
